FAERS Safety Report 25963326 (Version 1)
Quarter: 2025Q4

REPORT INFORMATION
  Report Type: Spontaneous
  Country: US (occurrence: US)
  Receive Date: 20251027
  Receipt Date: 20251027
  Transmission Date: 20260118
  Serious: Yes (Hospitalization, Other)
  Sender: CIPLA
  Company Number: US-MLMSERVICE-20251006-PI670034-00101-1

PATIENT

DRUGS (16)
  1. BLEOMYCIN SULFATE [Suspect]
     Active Substance: BLEOMYCIN SULFATE
     Indication: Extragonadal primary germ cell tumour
     Dosage: UNK
     Route: 065
  2. BLEOMYCIN SULFATE [Suspect]
     Active Substance: BLEOMYCIN SULFATE
     Indication: Metastases to lymph nodes
  3. BLEOMYCIN SULFATE [Suspect]
     Active Substance: BLEOMYCIN SULFATE
     Indication: Metastases to bone
  4. BLEOMYCIN SULFATE [Suspect]
     Active Substance: BLEOMYCIN SULFATE
     Indication: Metastases to liver
  5. BLEOMYCIN SULFATE [Suspect]
     Active Substance: BLEOMYCIN SULFATE
     Indication: Malignant mediastinal neoplasm
  6. CISPLATIN [Suspect]
     Active Substance: CISPLATIN
     Indication: Extragonadal primary germ cell tumour
     Dosage: UNK
     Route: 065
  7. CISPLATIN [Suspect]
     Active Substance: CISPLATIN
     Indication: Metastases to lymph nodes
  8. CISPLATIN [Suspect]
     Active Substance: CISPLATIN
     Indication: Metastases to bone
  9. CISPLATIN [Suspect]
     Active Substance: CISPLATIN
     Indication: Metastases to liver
  10. CISPLATIN [Suspect]
     Active Substance: CISPLATIN
     Indication: Malignant mediastinal neoplasm
  11. ETOPOSIDE [Suspect]
     Active Substance: ETOPOSIDE
     Indication: Extragonadal primary germ cell tumour
     Dosage: UNK
     Route: 065
  12. ETOPOSIDE [Suspect]
     Active Substance: ETOPOSIDE
     Indication: Metastases to lymph nodes
  13. ETOPOSIDE [Suspect]
     Active Substance: ETOPOSIDE
     Indication: Metastases to bone
  14. ETOPOSIDE [Suspect]
     Active Substance: ETOPOSIDE
     Indication: Metastases to liver
  15. ETOPOSIDE [Suspect]
     Active Substance: ETOPOSIDE
     Indication: Malignant mediastinal neoplasm
  16. GRANIX [Concomitant]
     Active Substance: TBO-FILGRASTIM
     Indication: Product used for unknown indication
     Dosage: UNK
     Route: 065

REACTIONS (4)
  - Pneumonia [Not Recovered/Not Resolved]
  - Neutropenia [Unknown]
  - Anaemia [Unknown]
  - Pleural effusion [Not Recovered/Not Resolved]
